FAERS Safety Report 10599827 (Version 1)
Quarter: 2014Q4

REPORT INFORMATION
  Report Type: Spontaneous
  Country: PL (occurrence: PL)
  Receive Date: 20141121
  Receipt Date: 20141121
  Transmission Date: 20150529
  Serious: Yes (Death, Other)
  Sender: FDA-Public Use
  Company Number: PL-BAXTER-2014BAX068871

PATIENT
  Age: 70 Year
  Sex: Male

DRUGS (8)
  1. PANCURONIUM [Suspect]
     Active Substance: PANCURONIUM
     Indication: FEELING OF RELAXATION
     Route: 065
  2. THIOPENTAL SODIUM. [Suspect]
     Active Substance: THIOPENTAL SODIUM
     Indication: PRODUCT USED FOR UNKNOWN INDICATION
     Route: 065
  3. AERRANE [Suspect]
     Active Substance: ISOFLURANE
     Indication: ANAESTHESIA PROCEDURE
     Route: 055
  4. ETOMIDATE LIPURO [Suspect]
     Active Substance: ETOMIDATE
     Indication: ANAESTHESIA PROCEDURE
     Route: 042
  5. FENTANYL. [Suspect]
     Active Substance: FENTANYL
     Route: 065
  6. MIDANIUM [Suspect]
     Active Substance: MIDAZOLAM HYDROCHLORIDE
     Indication: PREMEDICATION
     Route: 065
  7. FENTANYL. [Suspect]
     Active Substance: FENTANYL
     Indication: ANAESTHESIA PROCEDURE
     Route: 065
  8. TRANEXAMIC ACID. [Suspect]
     Active Substance: TRANEXAMIC ACID
     Indication: ANTICOAGULANT THERAPY
     Route: 065

REACTIONS (2)
  - Multi-organ disorder [Fatal]
  - Mesenteric artery embolism [Unknown]
